FAERS Safety Report 9311009 (Version 1)
Quarter: 2013Q2

REPORT INFORMATION
  Report Type: Spontaneous
  Country: US (occurrence: None)
  Receive Date: 20130523
  Receipt Date: 20130523
  Transmission Date: 20140414
  Serious: No
  Sender: FDA-Public Use
  Company Number: None

PATIENT
  Age: 18 Year
  Sex: Male
  Weight: 60 kg

DRUGS (2)
  1. WARFARIN [Suspect]
     Dosage: 6 MG DAILY PO
     Route: 048
     Dates: start: 20130301, end: 20130520
  2. WARFARIN [Suspect]
     Route: 048

REACTIONS (1)
  - Anticoagulation drug level below therapeutic [None]
